FAERS Safety Report 5781408-9 (Version None)
Quarter: 2008Q2

REPORT INFORMATION
  Report Type: 
  Country: None (occurrence: None)
  Receive Date: 20080623
  Receipt Date: 20080612
  Transmission Date: 20081010
  Serious: Yes (Hospitalization)
  Sender: FDA-Public Use
  Company Number: US-WYE-H04460408

PATIENT
  Age: 62 Year
  Sex: Female

DRUGS (1)
  1. PRISTIQ [Suspect]
     Indication: MAJOR DEPRESSION
     Route: 048
     Dates: start: 20080611, end: 20080612

REACTIONS (2)
  - EAR HAEMORRHAGE [None]
  - LOSS OF CONSCIOUSNESS [None]
